FAERS Safety Report 4381137-2 (Version None)
Quarter: 2004Q2

REPORT INFORMATION
  Report Type: 
  Country: None (occurrence: None)
  Receive Date: 20040616
  Receipt Date: 20040601
  Transmission Date: 20050107
  Serious: Yes (Other)
  Sender: FDA-Public Use
  Company Number: USA040361388

PATIENT
  Age: 60 Year
  Sex: Female
  Weight: 58 kg

DRUGS (20)
  1. FORTEO [Suspect]
     Indication: OSTEOPOROSIS
     Dosage: 20 UG DAY
     Dates: start: 20030101
  2. HYDREA [Concomitant]
  3. AGRYLIN (ANAGRELIDE HYDROCLORIDE) [Concomitant]
  4. MIDRIN [Concomitant]
  5. WELLBUTRIN [Concomitant]
  6. VIOXX [Concomitant]
  7. FOLIC ACID [Concomitant]
  8. TIZANIDINE HCL [Concomitant]
  9. PREMARIN [Concomitant]
  10. METHOTREXATE [Concomitant]
  11. ALDACTONE [Concomitant]
  12. DURAGESIC [Concomitant]
  13. AMBIEN [Concomitant]
  14. DETROL [Concomitant]
  15. CALCIUM [Concomitant]
  16. MIRAPEX (MIRAPEX) [Concomitant]
  17. NIZORAL [Concomitant]
  18. PROPOXYPHENE [Concomitant]
  19. TRIAMCINOLONE [Concomitant]
  20. ZANAFLEX [Concomitant]

REACTIONS (4)
  - ARTHRALGIA [None]
  - BLOOD CALCIUM INCREASED [None]
  - BUTTOCK PAIN [None]
  - FRACTURE NONUNION [None]
